FAERS Safety Report 8426938-6 (Version None)
Quarter: 2012Q2

REPORT INFORMATION
  Report Type: 
  Country: None (occurrence: None)
  Receive Date: 20120611
  Receipt Date: 20120531
  Transmission Date: 20120825
  Serious: Yes (Other)
  Sender: FDA-Public Use
  Company Number: US-SANOFI-AVENTIS-2012SA040678

PATIENT

DRUGS (5)
  1. DOCETAXEL [Suspect]
     Indication: NON-SMALL CELL LUNG CANCER
     Dosage: FOR 4 CYCLES
     Route: 065
  2. CARBOPLATIN [Suspect]
     Indication: NON-SMALL CELL LUNG CANCER
     Dosage: AUC = 5 FOR 4 CYCLES.
     Route: 065
  3. BEVACIZUMAB [Suspect]
     Indication: NON-SMALL CELL LUNG CANCER
     Dosage: ADMINISTERED ON DAY 1, FOR FOUR CYCLES.
     Route: 042
  4. BEVACIZUMAB [Suspect]
     Dosage: MAINTAINENCE DOSE, ADMINISTERED ON DAY 1
     Route: 042
  5. ERLOTINIB HYDROCHLORIDE [Suspect]
     Indication: NON-SMALL CELL LUNG CANCER
     Dosage: MAINTAINENCE DOSE
     Route: 048

REACTIONS (1)
  - BRONCHOPLEURAL FISTULA [None]
